FAERS Safety Report 6166791-7 (Version None)
Quarter: 2009Q2

REPORT INFORMATION
  Report Type: 
  Country: None (occurrence: None)
  Receive Date: 20090424
  Receipt Date: 20090324
  Transmission Date: 20091009
  Serious: No
  Sender: FDA-Public Use
  Company Number: US-BAYER-200916558NA

PATIENT
  Age: 51 Year
  Sex: Female

DRUGS (7)
  1. CIPROFLOXACIN HCL [Suspect]
     Indication: DACRYOCANALICULITIS
     Dosage: 3RD COURSE
     Dates: start: 20090301
  2. CIPROFLOXACIN HCL [Suspect]
     Dosage: TOTAL DAILY DOSE: 1000 MG  UNIT DOSE: 500 MG
     Dates: start: 20090201, end: 20090201
  3. CIPROFLOXACIN HCL [Suspect]
     Dosage: TOTAL DAILY DOSE: 1000 MG  UNIT DOSE: 500 MG
     Dates: start: 20090301, end: 20090301
  4. CIPROFLOXACIN HCL [Suspect]
     Dosage: TOTAL DAILY DOSE: 1000 MG  UNIT DOSE: 500 MG
     Dates: start: 20090201
  5. CIPROFLOXACIN HCL [Suspect]
     Dosage: TOTAL DAILY DOSE: 1000 MG  UNIT DOSE: 500 MG
     Dates: start: 20090301
  6. CODEINE [Concomitant]
  7. IBUPROFEN [Concomitant]
     Dosage: TOTAL DAILY DOSE: 800 MG  UNIT DOSE: 200 MG
     Dates: start: 20090301

REACTIONS (2)
  - DACRYOCANALICULITIS [None]
  - FATIGUE [None]
